FAERS Safety Report 11218849 (Version 2)
Quarter: 2017Q1

REPORT INFORMATION
  Report Type: Spontaneous
  Country: US (occurrence: US)
  Receive Date: 20150625
  Receipt Date: 20170329
  Transmission Date: 20170428
  Serious: Yes (Hospitalization, Other)
  Sender: FDA-Public Use
  Company Number: US-ELI_LILLY_AND_COMPANY-US201506006841

PATIENT
  Sex: Female

DRUGS (2)
  1. CYMBALTA [Suspect]
     Active Substance: DULOXETINE HYDROCHLORIDE
     Indication: DEPRESSION
     Dosage: 60 MG, BID
     Route: 048
  2. CYMBALTA [Suspect]
     Active Substance: DULOXETINE HYDROCHLORIDE
     Indication: FIBROMYALGIA
     Dosage: UNK UNK, UNKNOWN
     Route: 065
     Dates: start: 2013

REACTIONS (20)
  - Mood altered [Unknown]
  - Sensory disturbance [Unknown]
  - Nightmare [Unknown]
  - Nausea [Unknown]
  - Affect lability [Unknown]
  - Insomnia [Unknown]
  - Anxiety [Unknown]
  - Irritability [Unknown]
  - Drug withdrawal syndrome [Unknown]
  - Confusional state [Unknown]
  - Suicidal ideation [Unknown]
  - Intentional product misuse [Unknown]
  - Dysphoria [Unknown]
  - Agitation [Unknown]
  - Vertigo [Unknown]
  - Dizziness [Unknown]
  - Poor quality sleep [Unknown]
  - Paraesthesia [Unknown]
  - Mood swings [Unknown]
  - Diarrhoea [Unknown]
